FAERS Safety Report 5076032-X (Version None)
Quarter: 2006Q3

REPORT INFORMATION
  Report Type: 
  Country: None (occurrence: None)
  Receive Date: 20060809
  Receipt Date: 20060804
  Transmission Date: 20061208
  Serious: Yes (Other)
  Sender: FDA-Public Use
  Company Number: GB-BOEHRINGER INGELHEIM PHARMACEUTICALS, INC.-2006-UK-03429UK

PATIENT
  Sex: Male

DRUGS (1)
  1. MOBIC [Suspect]
     Indication: BACK PAIN
     Route: 048

REACTIONS (2)
  - BLINDNESS UNILATERAL [None]
  - THROMBOSIS [None]
